FAERS Safety Report 6868967-X (Version None)
Quarter: 2010Q3

REPORT INFORMATION
  Report Type: 
  Country: None (occurrence: None)
  Receive Date: 20100722
  Receipt Date: 20100722
  Transmission Date: 20110219
  Serious: No
  Sender: FDA-Public Use
  Company Number: None

PATIENT
  Sex: Female
  Weight: 131.4 kg

DRUGS (1)
  1. SIMPONI [Suspect]
     Indication: RHEUMATOID ARTHRITIS
     Dosage: 50 MG ONCE A MONTH SQ 057
     Route: 058
     Dates: start: 20100201, end: 20100501

REACTIONS (2)
  - PRURITUS [None]
  - RHEUMATOID NODULE [None]
